FAERS Safety Report 13950722 (Version 1)
Quarter: 2017Q3

REPORT INFORMATION
  Report Type: Spontaneous
  Country: PT (occurrence: PT)
  Receive Date: 20170908
  Receipt Date: 20170908
  Transmission Date: 20171128
  Serious: Yes (Hospitalization, Other)
  Sender: FDA-Public Use
  Company Number: PT-GILEAD-2017-0292409

PATIENT
  Age: 25 Year
  Sex: Female
  Weight: 50 kg

DRUGS (7)
  1. ISONIAZIDA [Interacting]
     Active Substance: ISONIAZID
     Indication: ATYPICAL MYCOBACTERIAL LYMPHADENITIS
     Dosage: 300 MG, QD
     Route: 048
     Dates: start: 201703, end: 201708
  2. CLARITROMICINA [Concomitant]
     Active Substance: CLARITHROMYCIN
     Indication: ATYPICAL MYCOBACTERIAL LYMPHADENITIS
     Dosage: 500 MG, QD
     Route: 048
     Dates: start: 201703
  3. SULFAMETOXAZOL + TRIMETOPRIMA [Concomitant]
     Active Substance: SULFAMETHOXAZOLE\TRIMETHOPRIM
     Dosage: 960 MG, 3 TIMES A WEEK
  4. ETHAMBUTOL [Concomitant]
     Active Substance: ETHAMBUTOL HYDROCHLORIDE
     Indication: ATYPICAL MYCOBACTERIAL LYMPHADENITIS
     Dosage: 1200 MG, QD
     Route: 048
     Dates: start: 201703
  5. SULFAMETOXAZOL + TRIMETOPRIMA [Concomitant]
     Active Substance: SULFAMETHOXAZOLE\TRIMETHOPRIM
     Indication: ANTIFUNGAL PROPHYLAXIS
     Dosage: 3X/1WEEK
     Route: 048
     Dates: start: 201703
  6. TRUVADA [Suspect]
     Active Substance: EMTRICITABINE\TENOFOVIR DISOPROXIL FUMARATE
     Indication: HIV INFECTION
     Route: 048
     Dates: start: 201704, end: 201708
  7. RALTEGRAVIR. [Concomitant]
     Active Substance: RALTEGRAVIR
     Indication: HIV INFECTION
     Dosage: 400 MG, EVERY 12 HOURS
     Route: 048
     Dates: start: 201703

REACTIONS (8)
  - Blood creatinine increased [Recovering/Resolving]
  - Drug interaction [Unknown]
  - Blood urea increased [Recovering/Resolving]
  - Polyuria [Recovering/Resolving]
  - Nephritis allergic [Recovering/Resolving]
  - Pyrexia [Recovering/Resolving]
  - Tubulointerstitial nephritis [Recovering/Resolving]
  - Vomiting [Recovering/Resolving]

NARRATIVE: CASE EVENT DATE: 201706
